FAERS Safety Report 6460984-7 (Version None)
Quarter: 2009Q4

REPORT INFORMATION
  Report Type: 
  Country: None (occurrence: None)
  Receive Date: 20091130
  Receipt Date: 20091123
  Transmission Date: 20100525
  Serious: Yes (Other)
  Sender: FDA-Public Use
  Company Number: A0823505A

PATIENT
  Age: 49 Year
  Sex: Male

DRUGS (4)
  1. ADVAIR DISKUS 100/50 [Suspect]
     Indication: ASTHMA
     Route: 055
     Dates: start: 20090401
  2. LEVOTHYROXINE SODIUM [Concomitant]
     Dosage: 1TAB PER DAY
     Route: 048
  3. ANDROGEL [Concomitant]
  4. CABERGOLINE [Concomitant]
     Route: 048

REACTIONS (4)
  - ASTHMA [None]
  - DRUG INEFFECTIVE [None]
  - DYSPNOEA [None]
  - PRODUCT QUALITY ISSUE [None]
